FAERS Safety Report 8218014-2 (Version None)
Quarter: 2012Q1

REPORT INFORMATION
  Report Type: 
  Country: None (occurrence: None)
  Receive Date: 20120319
  Receipt Date: 20120314
  Transmission Date: 20120608
  Serious: Yes (Hospitalization, Other)
  Sender: FDA-Public Use
  Company Number: US-PFIZER INC-2011152980

PATIENT
  Sex: Female

DRUGS (3)
  1. CHANTIX [Suspect]
     Indication: SMOKING CESSATION THERAPY
     Dosage: STATER PACK
     Dates: start: 20070101, end: 20070101
  2. KLONOPIN [Concomitant]
     Dosage: UNK
     Dates: start: 20050101, end: 20120101
  3. CRESTOR [Concomitant]
     Indication: BLOOD CHOLESTEROL
     Dosage: UNK
     Dates: start: 20020101, end: 20120101

REACTIONS (4)
  - DEPRESSION [None]
  - NIGHTMARE [None]
  - ANXIETY [None]
  - SUICIDE ATTEMPT [None]
